FAERS Safety Report 24557690 (Version 1)
Quarter: 2024Q4

REPORT INFORMATION
  Report Type: Report from Study
  Country: DE (occurrence: DE)
  Receive Date: 20241028
  Receipt Date: 20241028
  Transmission Date: 20250115
  Serious: Yes (Life-Threatening, Other)
  Sender: PFIZER
  Company Number: DE-PFIZER INC-PV202400138737

PATIENT
  Age: 62 Year

DRUGS (2)
  1. PALBOCICLIB [Suspect]
     Active Substance: PALBOCICLIB
     Indication: Adenocarcinoma pancreas
     Dosage: 125 MG, DAILY
  2. TRAMETINIB [Suspect]
     Active Substance: TRAMETINIB
     Indication: Adenocarcinoma pancreas
     Dosage: 2 MG, DAILY

REACTIONS (2)
  - Pancreatitis acute [Unknown]
  - Rash [Unknown]
